FAERS Safety Report 6940755-5 (Version None)
Quarter: 2010Q3

REPORT INFORMATION
  Report Type: 
  Country: None (occurrence: None)
  Receive Date: 20100825
  Receipt Date: 20100816
  Transmission Date: 20110219
  Serious: Yes (Other)
  Sender: FDA-Public Use
  Company Number: US-ASTRAZENECA-2010SE38324

PATIENT
  Sex: Male

DRUGS (5)
  1. NEXIUM [Suspect]
     Indication: GASTROINTESTINAL DISORDER
     Route: 048
     Dates: start: 20070101
  2. PAVIXL [Suspect]
     Indication: CARDIAC DISORDER
     Route: 048
  3. PROTONIX [Suspect]
     Route: 048
  4. TROPL [Concomitant]
     Indication: HYPERTENSION
     Route: 048
  5. PRAVIX [Concomitant]
     Indication: CARDIAC DISORDER
     Route: 048

REACTIONS (2)
  - ABDOMINAL PAIN UPPER [None]
  - STENT PLACEMENT [None]
